FAERS Safety Report 12313152 (Version 1)
Quarter: 2016Q2

REPORT INFORMATION
  Report Type: Report from Study
  Country: US (occurrence: US)
  Receive Date: 20160428
  Receipt Date: 20160428
  Transmission Date: 20160815
  Serious: Yes (Hospitalization)
  Sender: FDA-Public Use
  Company Number: US-TAIHO ONCOLOGY INC-EU-2016-00774

PATIENT
  Age: 56 Year
  Sex: Female
  Weight: 50.85 kg

DRUGS (1)
  1. LONSURF [Suspect]
     Active Substance: TIPIRACIL HYDROCHLORIDE\TRIFLURIDINE
     Indication: RECTAL CANCER METASTATIC
     Dosage: CURRENT CYCLE 3 WITH UNKNOWN START DATE
     Route: 048
     Dates: start: 20160208, end: 20160414

REACTIONS (2)
  - Thrombosis [Unknown]
  - Disease progression [Unknown]

NARRATIVE: CASE EVENT DATE: 201604
